FAERS Safety Report 6817947-9 (Version None)
Quarter: 2010Q3

REPORT INFORMATION
  Report Type: 
  Country: None (occurrence: None)
  Receive Date: 20100706
  Receipt Date: 20090120
  Transmission Date: 20110219
  Serious: Yes (Hospitalization, Other)
  Sender: FDA-Public Use
  Company Number: US-PFIZER INC-2008061045

PATIENT
  Sex: Female

DRUGS (3)
  1. BEXTRA [Suspect]
     Indication: PAIN
     Dosage: 10 MG, 1X/DAY
     Dates: start: 20030801, end: 20040301
  2. BEXTRA [Suspect]
     Indication: FIBROMYALGIA
  3. BEXTRA [Suspect]
     Indication: ARTHRITIS

REACTIONS (2)
  - ANXIETY [None]
  - MYOCARDIAL INFARCTION [None]
